FAERS Safety Report 14243031 (Version 1)
Quarter: 2017Q4

REPORT INFORMATION
  Report Type: Spontaneous
  Country: US (occurrence: None)
  Receive Date: 20171130
  Receipt Date: 20171130
  Transmission Date: 20180321
  Serious: No
  Sender: FDA-Public Use
  Company Number: None

PATIENT
  Sex: Male

DRUGS (1)
  1. DUPIXENT [Suspect]
     Active Substance: DUPILUMAB
     Indication: DERMATITIS ATOPIC
     Dosage: 600MG ON DAY 0 THEN 300MG EVERY OTHER WEEK SQ
     Route: 058
     Dates: start: 20171018

REACTIONS (3)
  - Cold sweat [None]
  - Blood pressure increased [None]
  - Trismus [None]
